FAERS Safety Report 4545745-8 (Version None)
Quarter: 2005Q1

REPORT INFORMATION
  Report Type: 
  Country: None (occurrence: None)
  Receive Date: 20050103
  Receipt Date: 20041210
  Transmission Date: 20050727
  Serious: Yes (Hospitalization)
  Sender: FDA-Public Use
  Company Number: USA041285820

PATIENT
  Age: 53 Year
  Sex: Male
  Weight: 120 kg

DRUGS (3)
  1. HUMULIN 70/30 [Suspect]
     Indication: DIABETES MELLITUS
     Dosage: 115 U DAY
     Dates: start: 20041101
  2. HUMULIN R [Suspect]
     Indication: DIABETES MELLITUS
     Dates: start: 20010101
  3. HUMULIN 50/50 [Suspect]
     Indication: DIABETES MELLITUS
     Dates: start: 20010101, end: 20041101

REACTIONS (3)
  - CELLULITIS [None]
  - DIABETES MELLITUS INADEQUATE CONTROL [None]
  - PHARMACEUTICAL PRODUCT COMPLAINT [None]
